FAERS Safety Report 8609065 (Version 6)
Quarter: 2013Q3

REPORT INFORMATION
  Report Type: Spontaneous
  Country: US (occurrence: US)
  Receive Date: 20120611
  Receipt Date: 20130705
  Transmission Date: 20140515
  Serious: Yes (Other)
  Sender: FDA-Public Use
  Company Number: US-PFIZER INC-2012137116

PATIENT
  Age: 65 Year
  Sex: Female
  Weight: 59 kg

DRUGS (12)
  1. LYRICA [Suspect]
     Indication: FIBROMYALGIA
     Dosage: 150 MG, 2X/DAY (BID)
     Route: 048
     Dates: start: 2005, end: 201212
  2. LYRICA [Suspect]
     Dosage: 150 MG, 2X/DAY
     Dates: start: 201212, end: 201301
  3. LYRICA [Suspect]
     Dosage: 150 MG, 2X/DAY
     Route: 048
     Dates: start: 20130111
  4. TARKA [Concomitant]
     Indication: HYPERTENSION
     Dosage: UNK
  5. EFFEXOR-XR [Concomitant]
     Dosage: UNK
  6. TOPROL XL [Concomitant]
     Dosage: UNK
  7. NEXIUM [Concomitant]
     Dosage: UNK
  8. NASACORT [Concomitant]
     Dosage: UNK
  9. ASPIRIN [Concomitant]
     Dosage: UNK, 2X/DAY
  10. VYTORIN [Concomitant]
     Dosage: UNK
  11. MELOXICAM [Concomitant]
     Dosage: UNK
  12. OXYCONTIN [Concomitant]
     Dosage: 80 MG, 2X/DAY (BID)

REACTIONS (7)
  - Scoliosis [Not Recovered/Not Resolved]
  - Dysstasia [Unknown]
  - Tremor [Unknown]
  - Feeling abnormal [Unknown]
  - Pruritus [Recovered/Resolved]
  - Paraesthesia [Not Recovered/Not Resolved]
  - Pain in extremity [Not Recovered/Not Resolved]
